FAERS Safety Report 8473931-3 (Version None)
Quarter: 2012Q2

REPORT INFORMATION
  Report Type: 
  Country: None (occurrence: None)
  Receive Date: 20120628
  Receipt Date: 20120227
  Transmission Date: 20120825
  Serious: Yes (Other)
  Sender: FDA-Public Use
  Company Number: US-MYLANLABS-2012S1003066

PATIENT
  Age: 58 Year
  Sex: Male
  Weight: 86.91 kg

DRUGS (11)
  1. CLOZAPINE [Suspect]
     Indication: SCHIZOPHRENIA, PARANOID TYPE
     Route: 048
     Dates: end: 20120207
  2. PILOCARPINE [Concomitant]
  3. MIRALAX /00754501/ [Concomitant]
  4. LITHIUM CARBONATE [Concomitant]
  5. CLOZAPINE [Suspect]
     Route: 048
     Dates: start: 20120208
  6. CLOZAPINE [Suspect]
     Route: 048
     Dates: start: 20120208
  7. LOXITANE /00401803/ [Concomitant]
  8. ALPRAZOLAM [Concomitant]
     Dosage: 0.50MG IN THE MORNING, 0.25MG AT NOON AND 0.25MG AT SUPPER
  9. LORATADINE [Concomitant]
  10. CLOZAPINE [Suspect]
     Route: 048
     Dates: end: 20120207
  11. BUPROPION HCL [Concomitant]

REACTIONS (2)
  - GRANULOCYTOPENIA [None]
  - LEUKOPENIA [None]
